FAERS Safety Report 26059632 (Version 1)
Quarter: 2025Q4

REPORT INFORMATION
  Report Type: Spontaneous
  Country: CO (occurrence: CO)
  Receive Date: 20251118
  Receipt Date: 20251118
  Transmission Date: 20260117
  Serious: Yes (Other)
  Sender: PFIZER
  Company Number: CO-PFIZER INC-PV202500121932

PATIENT
  Age: 64 Year
  Sex: Female

DRUGS (1)
  1. CIBINQO [Suspect]
     Active Substance: ABROCITINIB
     Dosage: 100 MG, DAILY
     Dates: start: 202509, end: 2025

REACTIONS (5)
  - Hypersensitivity [Unknown]
  - Eye swelling [Unknown]
  - Skin texture abnormal [Unknown]
  - Swelling [Unknown]
  - Scab [Unknown]

NARRATIVE: CASE EVENT DATE: 20250101
